FAERS Safety Report 9584478 (Version 1)
Quarter: 2013Q4

REPORT INFORMATION
  Report Type: Spontaneous
  Country: US (occurrence: US)
  Receive Date: 20131002
  Receipt Date: 20131002
  Transmission Date: 20140711
  Serious: No
  Sender: FDA-Public Use
  Company Number: US-AMGEN-USASP2013054257

PATIENT
  Age: 66 Year
  Sex: Female
  Weight: 58.96 kg

DRUGS (20)
  1. ENBREL [Suspect]
     Indication: PRODUCT USED FOR UNKNOWN INDICATION
     Dosage: 50 MG, QWK
     Route: 058
  2. PLAQUENIL                          /00072602/ [Concomitant]
     Dosage: 200 MG, UNK
  3. RESTASIS [Concomitant]
     Dosage: 5%, EMULSION
  4. LOPRESSOR [Concomitant]
     Dosage: 50 MG, UNK
  5. PATANASE [Concomitant]
     Dosage: 0.6%
  6. ZYRTEC [Concomitant]
     Dosage: 5 MG, UNK
  7. VIAGRA [Concomitant]
     Dosage: 50 MG, UNK
  8. ARAVA [Concomitant]
     Dosage: 10 MG, UNK
  9. SIMVASTATIN [Concomitant]
     Dosage: 40 MG, UNK
  10. ADVAIR [Concomitant]
     Dosage: 100/50
  11. LEVOTHYROXIN [Concomitant]
     Dosage: 300 MUG, UNK
  12. PRILOSEC                           /00661201/ [Concomitant]
     Dosage: 20 MG, UNK
  13. VITAMIN D                          /00107901/ [Concomitant]
     Dosage: 1000 UNIT, UNK
  14. VITAMIN C                          /00008001/ [Concomitant]
     Dosage: 500 MG, UNK
  15. MAGNESIUM [Concomitant]
     Dosage: 400 MG, UNK
  16. FLAXSEED OIL [Concomitant]
     Dosage: UNK
  17. TYLENOL                            /00020001/ [Concomitant]
     Dosage: 325 MG, UNK
  18. FOLIC ACID [Concomitant]
     Dosage: 1000 MUG, UNK
  19. VITAMIN E                          /00110501/ [Concomitant]
     Dosage: UNK, BAR
  20. PROBIOTIC                          /06395501/ [Concomitant]
     Dosage: UNK

REACTIONS (4)
  - Injection site pain [Recovered/Resolved]
  - Injection site erythema [Recovered/Resolved]
  - Injection site pruritus [Recovered/Resolved]
  - Injection site swelling [Recovered/Resolved]
